FAERS Safety Report 4359195-0 (Version None)
Quarter: 2004Q2

REPORT INFORMATION
  Report Type: 
  Country: None (occurrence: None)
  Receive Date: 20040512
  Receipt Date: 20040503
  Transmission Date: 20050107
  Serious: Yes (Other)
  Sender: FDA-Public Use
  Company Number: 2004211535ES

PATIENT
  Age: 62 Year
  Sex: Male

DRUGS (2)
  1. LINEZOLID (LINEZOLID) TABLET [Suspect]
     Indication: INFECTION
     Dosage: 600 MG, BID, ORAL
     Route: 048
     Dates: start: 20040101, end: 20040301
  2. ACENOCOUMAROL [Concomitant]

REACTIONS (3)
  - BEDRIDDEN [None]
  - CLOSTRIDIUM COLITIS [None]
  - SIDEROBLASTIC ANAEMIA [None]
